FAERS Safety Report 9814602 (Version 1)
Quarter: 2014Q1

REPORT INFORMATION
  Report Type: Spontaneous
  Country: US (occurrence: US)
  Receive Date: 20140113
  Receipt Date: 20140113
  Transmission Date: 20141002
  Serious: Yes (Other)
  Sender: FDA-Public Use
  Company Number: US-009507513-1401USA004719

PATIENT
  Sex: Female

DRUGS (2)
  1. COSOPT PF [Suspect]
     Indication: GLAUCOMA
     Dosage: 1 DROP IN EACH EYE, TWICE DAILY
     Route: 047
     Dates: start: 201305
  2. COSOPT PF [Suspect]
     Dosage: 1 DROP IN EACH EYE, TWICE DAILY
     Route: 047
     Dates: start: 20140102

REACTIONS (4)
  - Glaucoma surgery [Unknown]
  - Reaction to preservatives [Unknown]
  - Superficial injury of eye [Not Recovered/Not Resolved]
  - Eye pain [Not Recovered/Not Resolved]
